FAERS Safety Report 8842645 (Version 2)
Quarter: 2012Q4

REPORT INFORMATION
  Report Type: 
  Country: GB (occurrence: GB)
  Receive Date: 20121016
  Receipt Date: 20121024
  Transmission Date: 20130627
  Serious: Yes (Death, Congenital Anomaly, Other)
  Sender: FDA-Public Use
  Company Number: GB-WATSON-2012-17144

PATIENT

DRUGS (8)
  1. TOPIRAMATE [Suspect]
     Indication: EPILEPSY
     Dosage: UNK
     Route: 064
  2. TOPIRAMATE [Suspect]
     Indication: FOETAL EXPOSURE DURING PREGNANCY
  3. ACETAZOLAMIDE [Suspect]
     Indication: EPILEPSY
     Route: 064
  4. ACETAZOLAMIDE [Suspect]
     Indication: FOETAL EXPOSURE DURING PREGNANCY
  5. ZONISAMIDE [Suspect]
     Indication: EPILEPSY
     Route: 064
  6. ZONISAMIDE [Suspect]
     Indication: FOETAL EXPOSURE DURING PREGNANCY
  7. TEGRETOL [Suspect]
     Indication: PRODUCT USED FOR UNKNOWN INDICATION
     Dosage: 800 mg, daily,Gestation Period 1 Trimester
     Route: 064
  8. TEGRETOL [Suspect]
     Indication: FOETAL EXPOSURE DURING PREGNANCY

REACTIONS (3)
  - Congenital intestinal malformation [Unknown]
  - Foetal exposure during pregnancy [Fatal]
  - Death neonatal [Fatal]
